FAERS Safety Report 6570377-X (Version None)
Quarter: 2010Q1

REPORT INFORMATION
  Report Type: 
  Country: None (occurrence: None)
  Receive Date: 20100204
  Receipt Date: 20100127
  Transmission Date: 20100710
  Serious: Yes (Other)
  Sender: FDA-Public Use
  Company Number: IT-B.I. PHARMACEUTICALS,INC./RIDGEFIELD-2010-DE-00477GD

PATIENT
  Age: 59 Year
  Sex: Male

DRUGS (3)
  1. NEVIRAPINE [Suspect]
     Indication: HIV INFECTION
  2. ZIDOVUDINE [Suspect]
     Indication: HIV INFECTION
  3. LAMIVUDINE [Suspect]
     Indication: HIV INFECTION

REACTIONS (6)
  - DISSEMINATED TUBERCULOSIS [None]
  - HISTIOCYTOSIS HAEMATOPHAGIC [None]
  - IMMUNE RECONSTITUTION SYNDROME [None]
  - PANCYTOPENIA [None]
  - PYREXIA [None]
  - WEIGHT DECREASED [None]
